FAERS Safety Report 5888569-1 (Version None)
Quarter: 2008Q3

REPORT INFORMATION
  Report Type: 
  Country: None (occurrence: None)
  Receive Date: 20080918
  Receipt Date: 20080915
  Transmission Date: 20090109
  Serious: Yes (Other)
  Sender: FDA-Public Use
  Company Number: DE-B.I. PHARMACEUTICALS,INC./RIDGEFIELD-2008-DE-03675DE

PATIENT
  Sex: Male
  Weight: 70 kg

DRUGS (1)
  1. SIFROL 0,7 MG [Suspect]
     Dosage: 10ANZ
     Route: 048

REACTIONS (4)
  - DRUG ABUSE [None]
  - OVERDOSE [None]
  - SOMNOLENCE [None]
  - SUICIDE ATTEMPT [None]
